FAERS Safety Report 4514545-7 (Version None)
Quarter: 2004Q4

REPORT INFORMATION
  Report Type: 
  Country: None (occurrence: None)
  Receive Date: 20041126
  Receipt Date: 20041117
  Transmission Date: 20050328
  Serious: Yes (Other)
  Sender: FDA-Public Use
  Company Number: STA-AE-04-MTX-577

PATIENT
  Age: 27 Year
  Sex: Male

DRUGS (3)
  1. METHOTREXATE [Suspect]
  2. REMICADE [Suspect]
     Indication: CROHN'S DISEASE
     Dosage: INTRAVENOUS
     Route: 042
     Dates: start: 20020101
  3. AZATHIOPRINE [Concomitant]

REACTIONS (4)
  - BRAIN NEOPLASM BENIGN [None]
  - CONVULSION [None]
  - GANGLIONEUROMA [None]
  - GLIOMA [None]
